FAERS Safety Report 6650380-1 (Version None)
Quarter: 2010Q1

REPORT INFORMATION
  Report Type: 
  Country: None (occurrence: None)
  Receive Date: 20100325
  Receipt Date: 20100223
  Transmission Date: 20100710
  Serious: Yes (Hospitalization, Other)
  Sender: FDA-Public Use
  Company Number: US-TYCO HEALTHCARE/MALLINCKRODT-T201000777

PATIENT
  Sex: Male
  Weight: 85.5 kg

DRUGS (2)
  1. OPTIMARK [Suspect]
     Dosage: UNK
     Dates: start: 20060414
  2. OMNISCAN [Suspect]
     Dosage: UNK
     Dates: start: 20040407

REACTIONS (8)
  - ANAEMIA [None]
  - HAEMATURIA [None]
  - HAEMORRHAGE [None]
  - INTESTINAL PERFORATION [None]
  - NEPHROGENIC SYSTEMIC FIBROSIS [None]
  - OEDEMA [None]
  - PAIN IN EXTREMITY [None]
  - VENOUS STENOSIS [None]
